FAERS Safety Report 21349749 (Version 1)
Quarter: 2022Q3

REPORT INFORMATION
  Report Type: Spontaneous
  Country: CA (occurrence: CA)
  Receive Date: 20220919
  Receipt Date: 20220919
  Transmission Date: 20221027
  Serious: Yes (Hospitalization, Other)
  Sender: FDA-Public Use
  Company Number: CA-009507513-2209CAN006170

PATIENT
  Age: 53 Year
  Sex: Male
  Weight: 74 kg

DRUGS (7)
  1. CUBICIN [Suspect]
     Active Substance: DAPTOMYCIN
     Indication: Staphylococcal bacteraemia
     Dosage: 800 MILLIGRAM, QOD
     Route: 042
  2. CUBICIN [Suspect]
     Active Substance: DAPTOMYCIN
     Indication: Endocarditis staphylococcal
  3. CUBICIN [Suspect]
     Active Substance: DAPTOMYCIN
     Indication: Endocarditis
  4. DOXYCYCLINE [Concomitant]
     Active Substance: DOXYCYCLINE
     Dosage: UNK
     Route: 065
  5. RISPERIDONE [Concomitant]
     Active Substance: RISPERIDONE
     Dosage: UNK
     Route: 065
  6. VANCOMYCIN HYDROCHLORIDE [Concomitant]
     Active Substance: VANCOMYCIN HYDROCHLORIDE
     Route: 065
  7. CEFTOBIPROLE MEDOCARIL [Concomitant]
     Active Substance: CEFTOBIPROLE MEDOCARIL
     Dosage: UNK
     Route: 065

REACTIONS (3)
  - Eosinophilic pneumonia acute [Unknown]
  - Mechanical ventilation [Unknown]
  - Respiratory failure [Unknown]
